FAERS Safety Report 23763303 (Version 1)
Quarter: 2024Q2

REPORT INFORMATION
  Report Type: Spontaneous
  Country: US (occurrence: None)
  Receive Date: 20240419
  Receipt Date: 20240419
  Transmission Date: 20240715
  Serious: Yes (Other)
  Sender: FDA-Public Use
  Company Number: None

PATIENT
  Age: 74 Year
  Sex: Male

DRUGS (1)
  1. XDEMVY [Suspect]
     Active Substance: LOTILANER
     Indication: Demodex blepharitis
     Dosage: 1 DROP INTO EACH EYE BID OPHTHALMIC

REACTIONS (4)
  - Instillation site irritation [None]
  - Instillation site irritation [None]
  - Instillation site pruritus [None]
  - Therapy cessation [None]
